FAERS Safety Report 18095545 (Version 1)
Quarter: 2020Q3

REPORT INFORMATION
  Report Type: Report from Study
  Country: KR (occurrence: KR)
  Receive Date: 20200730
  Receipt Date: 20200730
  Transmission Date: 20201103
  Serious: Yes (Other)
  Sender: FDA-Public Use
  Company Number: KR-BAYER-2020-150718

PATIENT
  Sex: Female

DRUGS (1)
  1. LEVONORGESTREL?RELEASING INTRAUTERINE DEVICE [Suspect]
     Active Substance: LEVONORGESTREL
     Indication: ADENOMYOSIS
     Dosage: 20 ?G/24H CONTINOUSLY

REACTIONS (1)
  - Hepatic enzyme increased [None]
